FAERS Safety Report 5110318-5 (Version None)
Quarter: 2006Q3

REPORT INFORMATION
  Report Type: 
  Country: None (occurrence: None)
  Receive Date: 20060921
  Receipt Date: 20060913
  Transmission Date: 20061208
  Serious: Yes (Other)
  Sender: FDA-Public Use
  Company Number: FR-ROCHE-463450

PATIENT
  Age: 77 Year
  Sex: Male

DRUGS (2)
  1. PEGASYS [Suspect]
     Indication: HEPATIC CIRRHOSIS
     Route: 058
     Dates: start: 20060215, end: 20060914
  2. COPEGUS [Concomitant]
     Indication: HEPATIC CIRRHOSIS
     Dosage: MAINTENANCE TREATMENT.
     Route: 065
     Dates: start: 20060215

REACTIONS (3)
  - DIPLOPIA [None]
  - ELECTROPHORESIS ABNORMAL [None]
  - LEUKOPENIA [None]
